FAERS Safety Report 10074634 (Version 1)
Quarter: 2014Q2

REPORT INFORMATION
  Report Type: Report from Study
  Country: SK (occurrence: SK)
  Receive Date: 20140414
  Receipt Date: 20140414
  Transmission Date: 20141212
  Serious: Yes (Hospitalization)
  Sender: FDA-Public Use
  Company Number: SK-ROCHE-1381092

PATIENT
  Age: 85 Year
  Sex: Male
  Weight: 66 kg

DRUGS (6)
  1. RANIBIZUMAB [Suspect]
     Indication: RETINAL VEIN OCCLUSION
     Dosage: MOST RECENT DOSE 18/FEB/2014
     Route: 050
     Dates: start: 20130129
  2. NITRENDIPINE [Suspect]
     Indication: HYPERTENSION
     Route: 065
     Dates: start: 20030312
  3. TRITACE [Concomitant]
     Route: 065
     Dates: start: 20030312
  4. BETALOC ZOK [Concomitant]
     Route: 065
     Dates: start: 20030312
  5. HELICID [Concomitant]
     Route: 065
     Dates: start: 20080617
  6. BETAHISTINE [Concomitant]
     Route: 065
     Dates: start: 20120916

REACTIONS (1)
  - Myocardial ischaemia [Recovering/Resolving]
